FAERS Safety Report 14518133 (Version 1)
Quarter: 2018Q1

REPORT INFORMATION
  Report Type: Spontaneous
  Country: US (occurrence: US)
  Receive Date: 20180209
  Receipt Date: 20180209
  Transmission Date: 20180509
  Serious: Yes (Hospitalization)
  Sender: FDA-Public Use
  Company Number: None

PATIENT
  Age: 14 Year
  Sex: Female
  Weight: 57.6 kg

DRUGS (2)
  1. BACLOFEN 10MG [Suspect]
     Active Substance: BACLOFEN
     Indication: JUVENILE MYOCLONIC EPILEPSY
     Dosage: FREQUENCY - 2 TABS TWICE DAILY
     Route: 048
     Dates: start: 20140911, end: 20141121
  2. CLONAZEPAM. [Suspect]
     Active Substance: CLONAZEPAM
     Indication: JUVENILE MYOCLONIC EPILEPSY
     Route: 048
     Dates: start: 20140911, end: 20141031

REACTIONS (2)
  - Condition aggravated [None]
  - Seizure [None]

NARRATIVE: CASE EVENT DATE: 201711
